FAERS Safety Report 16361997 (Version 1)
Quarter: 2019Q2

REPORT INFORMATION
  Report Type: Spontaneous
  Country: US (occurrence: US)
  Receive Date: 20190528
  Receipt Date: 20190528
  Transmission Date: 20190711
  Serious: No
  Sender: FDA-Public Use
  Company Number: US-PFIZER INC-2019223650

PATIENT
  Sex: Female

DRUGS (2)
  1. LYRICA [Suspect]
     Active Substance: PREGABALIN
     Indication: PAIN
     Dosage: UNK UNK, 1X/DAY
  2. LYRICA [Suspect]
     Active Substance: PREGABALIN
     Dosage: UNK (TAKES 1 PILL IN THE MORNING + SOMETIMES TAKES 1 PILL IF SHE IS IN PAIN)

REACTIONS (2)
  - Vascular pain [Unknown]
  - Pain in extremity [Unknown]
